FAERS Safety Report 13205506 (Version 1)
Quarter: 2017Q1

REPORT INFORMATION
  Report Type: Spontaneous
  Country: US (occurrence: US)
  Receive Date: 20170208
  Receipt Date: 20170208
  Transmission Date: 20170428
  Serious: Yes (Other)
  Sender: FDA-Public Use
  Company Number: None

PATIENT
  Age: 11 Year
  Sex: Male
  Weight: 52.16 kg

DRUGS (2)
  1. GENERIC CONCERTA [Suspect]
     Active Substance: METHYLPHENIDATE HYDROCHLORIDE
     Indication: ATTENTION DEFICIT/HYPERACTIVITY DISORDER
     Route: 048
     Dates: start: 2011, end: 2015
  2. CONCERTA [Suspect]
     Active Substance: METHYLPHENIDATE HYDROCHLORIDE
     Indication: OPPOSITIONAL DEFIANT DISORDER
     Dates: start: 2015, end: 2016

REACTIONS (3)
  - Educational problem [None]
  - Product physical issue [None]
  - Product substitution issue [None]

NARRATIVE: CASE EVENT DATE: 20150429
